FAERS Safety Report 9654391 (Version 4)
Quarter: 2013Q4

REPORT INFORMATION
  Report Type: Spontaneous
  Country: US (occurrence: None)
  Receive Date: 20131021
  Receipt Date: 20131107
  Transmission Date: 20140711
  Serious: Yes (Other)
  Sender: FDA-Public Use
  Company Number: 2013038257

PATIENT
  Age: 2 Year
  Sex: Male
  Weight: 13.15 kg

DRUGS (1)
  1. PRIVIGEN [Suspect]
     Dosage: 10G 1X/4 WEEKS, 1-3 HOURS INTRAVENOUS (NOT OTHERWISE SPECIFIED)
     Route: 042
     Dates: start: 20130927, end: 20130927

REACTIONS (7)
  - Chills [None]
  - Feeling hot [None]
  - Pyrexia [None]
  - Blood pressure increased [None]
  - Abdominal pain upper [None]
  - Migraine [None]
  - Infusion related reaction [None]
